FAERS Safety Report 9837229 (Version 1)
Quarter: 2013Q4

REPORT INFORMATION
  Report Type: Spontaneous
  Country: ES (occurrence: None)
  Receive Date: 20131121
  Receipt Date: 20131121
  Transmission Date: 20140711
  Serious: Yes (Other)
  Sender: FDA-Public Use
  Company Number: 2012-01529

PATIENT
  Age: 4 Month
  Sex: Female

DRUGS (1)
  1. CEFOTAXIME [Suspect]
     Indication: BRONCHITIS
     Route: 042

REACTIONS (1)
  - Anaphylactic shock [None]
